FAERS Safety Report 7069734-7 (Version None)
Quarter: 2010Q4

REPORT INFORMATION
  Report Type: 
  Country: None (occurrence: None)
  Receive Date: 20101028
  Receipt Date: 20100513
  Transmission Date: 20110411
  Serious: No
  Sender: FDA-Public Use
  Company Number: US-WYE-H15283510

PATIENT
  Sex: Female

DRUGS (2)
  1. EFFEXOR [Suspect]
     Route: 048
  2. EFFEXOR [Suspect]
     Dosage: 37.5 MG (FREQUENCY UNKNOWN)
     Route: 048

REACTIONS (4)
  - CRYING [None]
  - DRUG WITHDRAWAL SYNDROME [None]
  - MENTAL IMPAIRMENT [None]
  - TINNITUS [None]
